FAERS Safety Report 7674409-7 (Version None)
Quarter: 2011Q3

REPORT INFORMATION
  Report Type: 
  Country: None (occurrence: None)
  Receive Date: 20110810
  Receipt Date: 20110801
  Transmission Date: 20111222
  Serious: Yes (Death, Life-Threatening, Hospitalization, Other)
  Sender: FDA-Public Use
  Company Number: US-ELI_LILLY_AND_COMPANY-US201108001240

PATIENT
  Sex: Male

DRUGS (9)
  1. PRASUGREL HYDROCHLORIDE [Suspect]
     Indication: INTERMITTENT CLAUDICATION
     Dosage: UNK, UNKNOWN
     Route: 048
     Dates: start: 20110518
  2. SPIRONOLACTONE [Concomitant]
     Dosage: UNK, UNKNOWN
     Route: 065
  3. NPH INSULIN [Concomitant]
     Dosage: UNK, UNKNOWN
     Route: 065
  4. ENALAPRIL MALEATE [Concomitant]
     Dosage: UNK, UNKNOWN
     Route: 065
  5. LEVOTHYROXINE SODIUM [Concomitant]
     Dosage: UNK, UNKNOWN
     Route: 065
  6. CARVEDILOL [Concomitant]
     Dosage: UNK, UNKNOWN
     Route: 065
  7. DIGOXIN [Concomitant]
     Dosage: UNK, UNKNOWN
     Route: 065
  8. FUROSEMIDE [Concomitant]
     Dosage: UNK, UNKNOWN
     Route: 065
  9. ROSUVASTATIN [Concomitant]
     Dosage: UNK, UNKNOWN
     Route: 065

REACTIONS (8)
  - CARDIAC FAILURE [None]
  - CARDIO-RESPIRATORY ARREST [None]
  - LOWER GASTROINTESTINAL HAEMORRHAGE [None]
  - SEPTIC SHOCK [None]
  - FIBROSIS [None]
  - RECTAL HAEMORRHAGE [None]
  - LUNG INFILTRATION [None]
  - VENTRICULAR DYSFUNCTION [None]
